FAERS Safety Report 11882271 (Version 1)
Quarter: 2015Q4

REPORT INFORMATION
  Report Type: Spontaneous
  Country: US (occurrence: None)
  Receive Date: 20151230
  Receipt Date: 20151230
  Transmission Date: 20160305
  Serious: Yes (Hospitalization)
  Sender: FDA-Public Use
  Company Number: None

PATIENT
  Age: 81 Year
  Sex: Male
  Weight: 127.4 kg

DRUGS (1)
  1. SULFAMETHOXAZOLE/TRIMETOPRIM [Suspect]
     Active Substance: SULFAMETHOXAZOLE\TRIMETHOPRIM
     Dosage: 800/160 MG ?BID?PO
     Route: 048
     Dates: start: 20150912, end: 20150917

REACTIONS (7)
  - Dysstasia [None]
  - Hallucination [None]
  - Blood glucose increased [None]
  - Confusional state [None]
  - Urinary tract infection [None]
  - Hyperkalaemia [None]
  - Asthenia [None]

NARRATIVE: CASE EVENT DATE: 20150917
